FAERS Safety Report 9109516 (Version 2)
Quarter: 2013Q2

REPORT INFORMATION
  Report Type: Report from Study
  Country: BE (occurrence: BE)
  Receive Date: 20130222
  Receipt Date: 20130402
  Transmission Date: 20140414
  Serious: Yes (Other)
  Sender: FDA-Public Use
  Company Number: BE-UCBSA-078741

PATIENT
  Age: 100 Year
  Sex: Female
  Weight: 52 kg

DRUGS (11)
  1. VIMPAT [Suspect]
     Indication: STATUS EPILEPTICUS
     Route: 042
     Dates: start: 20130215
  2. VIMPAT [Suspect]
     Route: 048
     Dates: start: 20130218, end: 201302
  3. VIMPAT [Suspect]
     Route: 048
     Dates: start: 201302, end: 201302
  4. VIMPAT [Suspect]
     Route: 048
     Dates: start: 20130224
  5. KEPPRA [Concomitant]
     Indication: EPILEPSY
  6. TAVOR [Concomitant]
     Indication: STATUS EPILEPTICUS
     Dosage: TWO DOSES
     Route: 042
     Dates: start: 20130214, end: 20130215
  7. DIPHANTOINE [Concomitant]
     Indication: STATUS EPILEPTICUS
     Dosage: ONE DOSE
     Route: 042
     Dates: start: 20130214, end: 20130214
  8. DIPHANTOINE [Concomitant]
     Indication: EPILEPSY
     Dosage: ONE DOSE
     Route: 042
     Dates: start: 20130214, end: 20130214
  9. DIPHANTOINE [Concomitant]
     Indication: STATUS EPILEPTICUS
     Route: 042
     Dates: start: 20130215
  10. DIPHANTOINE [Concomitant]
     Indication: EPILEPSY
     Route: 042
     Dates: start: 20130215
  11. PROPOFOL [Concomitant]
     Indication: PARTIAL SEIZURES WITH SECONDARY GENERALISATION
     Dates: start: 201302, end: 201302

REACTIONS (2)
  - Drug ineffective for unapproved indication [Recovered/Resolved]
  - Convulsion [Unknown]
